FAERS Safety Report 6426117-8 (Version None)
Quarter: 2009Q4

REPORT INFORMATION
  Report Type: 
  Country: None (occurrence: None)
  Receive Date: 20091104
  Receipt Date: 20091102
  Transmission Date: 20100525
  Serious: Yes (Death)
  Sender: FDA-Public Use
  Company Number: US-EISAI INC.-E2020-05344-CLI-US

PATIENT
  Sex: Female
  Weight: 50.7 kg

DRUGS (1)
  1. E2020-SR [Suspect]
     Route: 048
     Dates: start: 20090129, end: 20090809

REACTIONS (1)
  - DYSPHAGIA [None]
